FAERS Safety Report 5192677-0 (Version None)
Quarter: 2006Q4

REPORT INFORMATION
  Report Type: 
  Country: None (occurrence: None)
  Receive Date: 20061220
  Receipt Date: 20061206
  Transmission Date: 20070319
  Serious: Yes (Hospitalization)
  Sender: FDA-Public Use
  Company Number: 2006BI017970

PATIENT
  Age: 83 Year
  Sex: Female
  Weight: 61.6 kg

DRUGS (15)
  1. ZEVALIN [Suspect]
     Indication: DIFFUSE LARGE B-CELL LYMPHOMA
  2. RITUXAN [Concomitant]
  3. THYROID TAB [Concomitant]
  4. CYMBALTA [Concomitant]
  5. LIPITOR [Concomitant]
  6. PLAVIX [Concomitant]
  7. PREVACID [Concomitant]
  8. DARVON [Concomitant]
  9. ALLOPURINOL SODIUM [Concomitant]
  10. NEURONTIN [Concomitant]
  11. CYCLOPHOSPHAMIDE [Concomitant]
  12. DOXORUBICIN HCL [Concomitant]
  13. ORAL PREDNISONE [Concomitant]
  14. VINCRISTINE [Concomitant]
  15. NEULASTA [Concomitant]

REACTIONS (10)
  - BLOOD MAGNESIUM DECREASED [None]
  - FATIGUE [None]
  - FEBRILE NEUTROPENIA [None]
  - HAEMOGLOBIN DECREASED [None]
  - NEUTROPHIL COUNT DECREASED [None]
  - PHARYNGEAL ERYTHEMA [None]
  - PLATELET COUNT DECREASED [None]
  - RALES [None]
  - RESPIRATORY RATE INCREASED [None]
  - TACHYCARDIA [None]
